FAERS Safety Report 12972150 (Version 2)
Quarter: 2016Q4

REPORT INFORMATION
  Report Type: Report from Study
  Country: FR (occurrence: FR)
  Receive Date: 20161124
  Receipt Date: 20161202
  Transmission Date: 20170207
  Serious: Yes (Hospitalization)
  Sender: FDA-Public Use
  Company Number: FR-B.I. PHARMACEUTICALS,INC./RIDGEFIELD-2016-BI-10729BI

PATIENT
  Age: 34 Year
  Sex: Female
  Weight: 92.6 kg

DRUGS (5)
  1. NOVORAPID [Suspect]
     Active Substance: INSULIN ASPART
     Indication: TYPE 1 DIABETES MELLITUS
     Route: 058
     Dates: start: 20121219, end: 20160220
  2. BLINDED BI 10773 [Suspect]
     Active Substance: EMPAGLIFLOZIN
     Dosage: DATE OF LAST ADMINISTRATION PRIOR TO THE EVENT : 11NOV2016
     Route: 048
     Dates: start: 20160301
  3. BLINDED BI 10773 [Suspect]
     Active Substance: EMPAGLIFLOZIN
     Indication: TYPE 1 DIABETES MELLITUS
     Route: 050
     Dates: start: 20160129, end: 20160220
  4. NOVORAPID [Suspect]
     Active Substance: INSULIN ASPART
     Route: 058
     Dates: start: 20160301
  5. RENITEC [Concomitant]
     Active Substance: ENALAPRIL MALEATE
     Indication: HYPERTENSION
     Route: 048
     Dates: start: 20141213

REACTIONS (5)
  - Polydipsia [Recovered/Resolved]
  - Ketoacidosis [Recovered/Resolved]
  - Polyuria [Recovered/Resolved]
  - Influenza [Not Recovered/Not Resolved]
  - Breast cyst [Recovered/Resolved]

NARRATIVE: CASE EVENT DATE: 20160129
